FAERS Safety Report 8505203-2 (Version None)
Quarter: 2012Q3

REPORT INFORMATION
  Report Type: 
  Country: None (occurrence: None)
  Receive Date: 20120712
  Receipt Date: 20120705
  Transmission Date: 20120928
  Serious: Yes (Other)
  Sender: FDA-Public Use
  Company Number: US-US-EMD SERONO, INC.-7145545

PATIENT
  Sex: Female

DRUGS (1)
  1. REBIF [Suspect]
     Indication: MULTIPLE SCLEROSIS
     Route: 058
     Dates: start: 20090708

REACTIONS (4)
  - MULTIPLE SCLEROSIS RELAPSE [None]
  - INJECTION SITE NODULE [None]
  - FALL [None]
  - TOOTH ABSCESS [None]
